FAERS Safety Report 17610662 (Version 1)
Quarter: 2020Q2

REPORT INFORMATION
  Report Type: Spontaneous
  Country: US (occurrence: US)
  Receive Date: 20200401
  Receipt Date: 20200401
  Transmission Date: 20200713
  Serious: No
  Sender: FDA-Public Use
  Company Number: US-ASTRAZENECA-2020SE33915

PATIENT
  Sex: Female
  Weight: 77.1 kg

DRUGS (3)
  1. FLUOXATINE [Concomitant]
     Indication: LUNG DISORDER
     Dosage: 113/14 1 PUFF TWICE A DAY
     Route: 055
  2. SYMBICORT [Suspect]
     Active Substance: BUDESONIDE\FORMOTEROL FUMARATE DIHYDRATE
     Indication: LUNG DISORDER
     Dosage: 160/4.5MCG 2 PUFFS TWICE A DAY
     Route: 055
     Dates: start: 20191231, end: 20200108
  3. SALMATERAL [Concomitant]
     Indication: LUNG DISORDER
     Dosage: 113/14 1 PUFF TWICE A DAY
     Route: 055

REACTIONS (9)
  - Loss of personal independence in daily activities [Unknown]
  - Drug intolerance [Unknown]
  - Ageusia [Unknown]
  - Dizziness [Unknown]
  - Insomnia [Unknown]
  - Tremor [Unknown]
  - Speech disorder [Unknown]
  - Feeling abnormal [Unknown]
  - Hyperhidrosis [Unknown]
